FAERS Safety Report 18588098 (Version 1)
Quarter: 2020Q4

REPORT INFORMATION
  Report Type: Spontaneous
  Country: US (occurrence: US)
  Receive Date: 20201207
  Receipt Date: 20201207
  Transmission Date: 20210114
  Serious: No
  Sender: FDA-Public Use
  Company Number: US-009507513-2011USA015014

PATIENT
  Age: 73 Year
  Sex: Female

DRUGS (7)
  1. LIPITOR [Concomitant]
     Active Substance: ATORVASTATIN CALCIUM
  2. BRILINTA [Suspect]
     Active Substance: TICAGRELOR
     Route: 048
  3. TOPROL XL [Suspect]
     Active Substance: METOPROLOL SUCCINATE
     Route: 048
  4. MICROZIDE (HYDROCHLOROTHIAZIDE) [Concomitant]
  5. PLAVIX [Concomitant]
     Active Substance: CLOPIDOGREL BISULFATE
  6. PRINIVIL [Suspect]
     Active Substance: LISINOPRIL
     Route: 048
  7. EFFIENT [Concomitant]
     Active Substance: PRASUGREL HYDROCHLORIDE

REACTIONS (2)
  - Urticaria [Unknown]
  - Rash [Unknown]
